FAERS Safety Report 8561527-4 (Version None)
Quarter: 2012Q3

REPORT INFORMATION
  Report Type: 
  Country: None (occurrence: None)
  Receive Date: 20120802
  Receipt Date: 20120726
  Transmission Date: 20120928
  Serious: Yes (Hospitalization)
  Sender: FDA-Public Use
  Company Number: JP-JNJFOC-20120714212

PATIENT
  Sex: Male
  Weight: 75 kg

DRUGS (12)
  1. SIMPONI [Suspect]
     Indication: RHEUMATOID ARTHRITIS
     Route: 058
     Dates: start: 20120530
  2. FOLIC ACID [Concomitant]
     Indication: PROPHYLAXIS
     Route: 048
  3. METHOTREXATE [Suspect]
     Indication: RHEUMATOID ARTHRITIS
     Dates: end: 20120307
  4. SULFASALAZINE [Concomitant]
     Indication: RHEUMATOID ARTHRITIS
     Dates: end: 20120404
  5. ALLEGRA [Concomitant]
     Route: 048
     Dates: start: 20120307, end: 20120404
  6. ALLOPURINOL [Concomitant]
     Route: 048
  7. SIMPONI [Suspect]
     Route: 058
     Dates: start: 20111212, end: 20120511
  8. METHOTREXATE [Suspect]
     Dates: start: 20120522
  9. ISONIAZID [Concomitant]
     Indication: PROPHYLAXIS
     Route: 048
     Dates: start: 20111130
  10. PROGRAF [Suspect]
     Indication: PRODUCT USED FOR UNKNOWN INDICATION
     Dates: start: 20120404, end: 20120511
  11. METHOTREXATE [Suspect]
     Dates: start: 20120307, end: 20120511
  12. FLUNASE [Concomitant]
     Route: 045
     Dates: start: 20120307, end: 20120404

REACTIONS (2)
  - PNEUMONIA BACTERIAL [None]
  - ACUTE TONSILLITIS [None]
